FAERS Safety Report 20407953 (Version 1)
Quarter: 2022Q1

REPORT INFORMATION
  Report Type: Spontaneous
  Country: DE (occurrence: DE)
  Receive Date: 20220201
  Receipt Date: 20220201
  Transmission Date: 20220423
  Serious: Yes (Other)
  Sender: FDA-Public Use
  Company Number: DE-drreddys-LIT/GER/22/0146322

PATIENT
  Age: 61 Year
  Sex: Male

DRUGS (10)
  1. BORTEZOMIB [Suspect]
     Active Substance: BORTEZOMIB
     Indication: Plasma cell myeloma
  2. CYCLOPHOSPHAMIDE [Suspect]
     Active Substance: CYCLOPHOSPHAMIDE
     Indication: Plasma cell myeloma
  3. DEXAMETHASONE [Suspect]
     Active Substance: DEXAMETHASONE
     Indication: Plasma cell myeloma
  4. MELPHALAN [Suspect]
     Active Substance: MELPHALAN
     Indication: Plasma cell myeloma
     Dosage: HIGH-DOSE
  5. LENALIDOMIDE [Suspect]
     Active Substance: LENALIDOMIDE
     Indication: Plasma cell myeloma
  6. LENALIDOMIDE [Suspect]
     Active Substance: LENALIDOMIDE
     Indication: Plasma cell myeloma
  7. CARFILZOMIB [Suspect]
     Active Substance: CARFILZOMIB
  8. DEXAMETHASONE [Suspect]
     Active Substance: DEXAMETHASONE
  9. DARATUMUMAB [Suspect]
     Active Substance: DARATUMUMAB
  10. DEXAMETHASONE [Suspect]
     Active Substance: DEXAMETHASONE

REACTIONS (4)
  - Myelodysplastic syndrome [Recovering/Resolving]
  - Pancytopenia [Unknown]
  - Sepsis [Unknown]
  - Multiple fractures [Unknown]

NARRATIVE: CASE EVENT DATE: 20200601
